FAERS Safety Report 17679389 (Version 1)
Quarter: 2020Q2

REPORT INFORMATION
  Report Type: Spontaneous
  Country: US (occurrence: US)
  Receive Date: 20200416
  Receipt Date: 20200416
  Transmission Date: 20200714
  Serious: No
  Sender: FDA-Public Use
  Company Number: None

PATIENT
  Age: 78 Year
  Sex: Female
  Weight: 55.35 kg

DRUGS (12)
  1. ASPIRIN 81 MG [Concomitant]
     Active Substance: ASPIRIN
  2. BACTRIM DS [Concomitant]
     Active Substance: SULFAMETHOXAZOLE\TRIMETHOPRIM
  3. ROSUVASTATIN 20MG [Concomitant]
     Active Substance: ROSUVASTATIN
  4. NINLARO [Suspect]
     Active Substance: IXAZOMIB CITRATE
     Indication: PLASMA CELL MYELOMA
     Dosage: ?          OTHER FREQUENCY:Q WEEK FOR 3 WEEKS;?
     Route: 048
     Dates: start: 20200219
  5. MULTI VITAMIN [Concomitant]
     Active Substance: VITAMINS
  6. REVLIMID [Concomitant]
     Active Substance: LENALIDOMIDE
  7. TRAMADOL 50MG [Concomitant]
     Active Substance: TRAMADOL
  8. VITAMIN D 50MCG [Concomitant]
  9. PROBIOTIC [Concomitant]
     Active Substance: PROBIOTICS NOS
  10. VALACYLOVIR 500MG [Concomitant]
  11. NEXIUM [Concomitant]
     Active Substance: ESOMEPRAZOLE MAGNESIUM
  12. SOTALOL 80MG [Concomitant]
     Active Substance: SOTALOL

REACTIONS (2)
  - Pyrexia [None]
  - Rash [None]

NARRATIVE: CASE EVENT DATE: 20200416
